FAERS Safety Report 21092126 (Version 1)
Quarter: 2022Q3

REPORT INFORMATION
  Report Type: Spontaneous
  Country: US (occurrence: US)
  Receive Date: 20220718
  Receipt Date: 20220718
  Transmission Date: 20221027
  Serious: No
  Sender: FDA-Public Use
  Company Number: US-AMGEN-USASP2022115834

PATIENT
  Sex: Male

DRUGS (11)
  1. LUMAKRAS [Suspect]
     Active Substance: SOTORASIB
     Indication: Malignant neoplasm of unknown primary site
     Dosage: 120 MILLIGRAM, QD
     Route: 048
  2. LUMAKRAS [Suspect]
     Active Substance: SOTORASIB
     Indication: Metastatic lymphoma
  3. LUMAKRAS [Suspect]
     Active Substance: SOTORASIB
     Indication: Off label use
  4. AMLODIPINE BESYLATE AND BENAZEPRIL HYDROCHLORIDE [Concomitant]
     Active Substance: AMLODIPINE BESYLATE\BENAZEPRIL HYDROCHLORIDE
  5. LOSARTAN POTASSIUM AND HYDROCHLOROTHIAZIDE [Concomitant]
     Active Substance: HYDROCHLOROTHIAZIDE\LOSARTAN POTASSIUM
  6. METFORMIN HYDROCHLORIDE [Concomitant]
     Active Substance: METFORMIN HYDROCHLORIDE
  7. GEMFIBROZIL [Concomitant]
     Active Substance: GEMFIBROZIL
  8. FOLIC ACID [Concomitant]
     Active Substance: FOLIC ACID
  9. CLARITIN [Concomitant]
     Active Substance: LORATADINE
  10. OMEGA 3 [Concomitant]
     Active Substance: CAPSAICIN
  11. ASPIRIN [Concomitant]
     Active Substance: ASPIRIN

REACTIONS (4)
  - Fatigue [Unknown]
  - Diarrhoea [Unknown]
  - Nausea [Unknown]
  - Off label use [Unknown]
